FAERS Safety Report 6746772-2 (Version None)
Quarter: 2010Q2

REPORT INFORMATION
  Report Type: 
  Country: None (occurrence: None)
  Receive Date: 20100528
  Receipt Date: 20090923
  Transmission Date: 20101027
  Serious: No
  Sender: FDA-Public Use
  Company Number: A0809352A

PATIENT
  Age: 10 Year
  Sex: Male

DRUGS (2)
  1. VENTOLIN [Suspect]
     Indication: PULMONARY FUNCTION TEST
     Dosage: 2PUFF SINGLE DOSE
     Route: 055
     Dates: start: 20090922, end: 20090922
  2. NEBULIZER [Concomitant]

REACTIONS (1)
  - FORCED EXPIRATORY VOLUME DECREASED [None]
